FAERS Safety Report 8326761-7 (Version None)
Quarter: 2012Q2

REPORT INFORMATION
  Report Type: 
  Country: None (occurrence: None)
  Receive Date: 20120501
  Receipt Date: 20120419
  Transmission Date: 20120825
  Serious: Yes (Death, Life-Threatening, Hospitalization, Disabling)
  Sender: FDA-Public Use
  Company Number: DE-JNJFOC-20100703143

PATIENT
  Age: 59 Year
  Sex: Female

DRUGS (14)
  1. REMICADE [Suspect]
     Indication: RHEUMATOID ARTHRITIS
     Route: 042
     Dates: start: 20070301, end: 20071001
  2. METOPROLOL TARTRATE [Concomitant]
  3. HYDROMORPHONE HCL [Concomitant]
  4. DHC [Concomitant]
  5. METHOTREXATE [Concomitant]
     Dates: start: 20030501, end: 20070901
  6. RITUXIMAB [Concomitant]
     Indication: RHEUMATOID ARTHRITIS
     Dates: start: 20081212
  7. METHOTREXATE [Concomitant]
     Dates: start: 19930301, end: 20020401
  8. PREDNISOLONE [Concomitant]
  9. ABATACEPT [Concomitant]
     Indication: RHEUMATOID ARTHRITIS
     Dates: start: 20090901, end: 20091201
  10. METHOTREXATE [Concomitant]
     Dates: start: 20090101, end: 20090601
  11. METHOTREXATE [Concomitant]
     Indication: RHEUMATOID ARTHRITIS
     Dates: start: 20080401
  12. AMITRIPTYLINE HCL [Concomitant]
  13. REPAGLINIDE [Concomitant]
  14. METHOTREXATE [Concomitant]
     Dates: start: 20090701, end: 20100101

REACTIONS (10)
  - DYSPHONIA [None]
  - PNEUMONIA ASPIRATION [None]
  - TRACHEOBRONCHITIS [None]
  - CITROBACTER INFECTION [None]
  - DYSPHAGIA [None]
  - METASTATIC GASTRIC CANCER [None]
  - MENDELSON'S SYNDROME [None]
  - GASTROINTESTINAL STENOSIS [None]
  - PNEUMONIA [None]
  - HEPATIC NEOPLASM MALIGNANT [None]
